FAERS Safety Report 4595478-7 (Version None)
Quarter: 2005Q1

REPORT INFORMATION
  Report Type: 
  Country: None (occurrence: None)
  Receive Date: 20050302
  Receipt Date: 20050220
  Transmission Date: 20050727
  Serious: Yes (Hospitalization, Other)
  Sender: FDA-Public Use
  Company Number: US-JNJFOC-20050205626

PATIENT
  Age: 21 Year
  Sex: Male

DRUGS (1)
  1. INFLIXIMAB [Suspect]
     Indication: CROHN'S DISEASE
     Route: 042

REACTIONS (7)
  - ABDOMINAL PAIN [None]
  - ALVEOLITIS ALLERGIC [None]
  - DYSPNOEA [None]
  - HEADACHE [None]
  - HYPOXIA [None]
  - PYREXIA [None]
  - TACHYPNOEA [None]
